FAERS Safety Report 12185149 (Version 2)
Quarter: 2016Q1

REPORT INFORMATION
  Report Type: Spontaneous
  Country: US (occurrence: US)
  Receive Date: 20160316
  Receipt Date: 20160321
  Transmission Date: 20160526
  Serious: No
  Sender: FDA-Public Use
  Company Number: US-PFIZER INC-2016135851

PATIENT
  Age: 73 Year
  Sex: Male
  Weight: 62 kg

DRUGS (3)
  1. TYLENOL [Concomitant]
     Active Substance: ACETAMINOPHEN
     Dosage: UNK
     Dates: start: 20160302
  2. ADVIL [Suspect]
     Active Substance: IBUPROFEN
     Indication: LIMB INJURY
     Dosage: 600 MG, DAILY
     Dates: start: 20160301, end: 201603
  3. ADVIL [Suspect]
     Active Substance: IBUPROFEN
     Indication: BACK INJURY
     Dosage: ONE OR TWO LIQUIGELS 3X/DAY
     Dates: start: 201603

REACTIONS (2)
  - Product use issue [Unknown]
  - Mobility decreased [Unknown]
